FAERS Safety Report 11516395 (Version 1)
Quarter: 2015Q3

REPORT INFORMATION
  Report Type: Spontaneous
  Country: US (occurrence: US)
  Receive Date: 20150917
  Receipt Date: 20150917
  Transmission Date: 20151125
  Serious: No
  Sender: FDA-Public Use
  Company Number: US-PFIZER INC-2015302061

PATIENT
  Age: 73 Year
  Sex: Female

DRUGS (1)
  1. SONATA [Suspect]
     Active Substance: ZALEPLON
     Dosage: UNK

REACTIONS (2)
  - Reaction to drug excipients [Unknown]
  - Drug hypersensitivity [Unknown]
